FAERS Safety Report 8275050-8 (Version None)
Quarter: 2012Q2

REPORT INFORMATION
  Report Type: 
  Country: None (occurrence: None)
  Receive Date: 20120411
  Receipt Date: 20120405
  Transmission Date: 20120825
  Serious: Yes (Disabling, Congenital Anomaly)
  Sender: FDA-Public Use
  Company Number: PHHY2012JP026924

PATIENT
  Age: 3 Year

DRUGS (1)
  1. DIOVAN [Suspect]
     Dosage: 40 MG
     Route: 064

REACTIONS (2)
  - PHALANGEAL HYPOPLASIA [None]
  - FOETAL EXPOSURE DURING PREGNANCY [None]
